FAERS Safety Report 15221471 (Version 2)
Quarter: 2018Q3

REPORT INFORMATION
  Report Type: Spontaneous
  Country: JP (occurrence: JP)
  Receive Date: 20180731
  Receipt Date: 20180817
  Transmission Date: 20181010
  Serious: Yes (Hospitalization)
  Sender: FDA-Public Use
  Company Number: JP-GUERBET-JP-20180175

PATIENT
  Age: 77 Year
  Sex: Male

DRUGS (3)
  1. LIPIODOL [Suspect]
     Active Substance: ETHIODIZED OIL
     Indication: REGIONAL CHEMOTHERAPY
     Route: 013
     Dates: start: 20170907
  2. IA?CALL [Concomitant]
     Active Substance: CISPLATIN
     Indication: REGIONAL CHEMOTHERAPY
     Route: 013
     Dates: start: 20170907
  3. 5?FU [Concomitant]
     Active Substance: FLUOROURACIL
     Indication: REGIONAL CHEMOTHERAPY
     Route: 013
     Dates: start: 20170907

REACTIONS (4)
  - Haemobilia [Recovering/Resolving]
  - Bile duct obstruction [Recovering/Resolving]
  - Jaundice cholestatic [Recovering/Resolving]
  - Product use in unapproved indication [Recovering/Resolving]

NARRATIVE: CASE EVENT DATE: 20170912
